FAERS Safety Report 17326180 (Version 1)
Quarter: 2020Q1

REPORT INFORMATION
  Report Type: Spontaneous
  Country: DE (occurrence: DE)
  Receive Date: 20200127
  Receipt Date: 20200127
  Transmission Date: 20200409
  Serious: Yes (Other)
  Sender: FDA-Public Use
  Company Number: DE-ASTRAZENECA-2020SE11875

PATIENT
  Age: 53 Year

DRUGS (9)
  1. BECLOMETHASONE [Concomitant]
     Active Substance: BECLOMETHASONE
  2. MEPOLIZUMAB [Concomitant]
     Active Substance: MEPOLIZUMAB
  3. TIOTROPIUM [Concomitant]
     Active Substance: TIOTROPIUM
  4. MONTELUKAST [Concomitant]
     Active Substance: MONTELUKAST SODIUM
  5. BUDESONIDE. [Suspect]
     Active Substance: BUDESONIDE
     Indication: ASTHMA
     Route: 055
  6. BENRALIZUMAB. [Concomitant]
     Active Substance: BENRALIZUMAB
  7. PREDNISOLONE. [Concomitant]
     Active Substance: PREDNISOLONE
     Dosage: 5.0MG UNKNOWN
  8. THEOPHYLLINE [Concomitant]
     Active Substance: THEOPHYLLINE ANHYDROUS
  9. PREDNISOLONE. [Concomitant]
     Active Substance: PREDNISOLONE
     Dosage: 20.0MG UNKNOWN
     Dates: start: 2013

REACTIONS (6)
  - Atrial fibrillation [Unknown]
  - Osteoporosis [Unknown]
  - Tachycardia [Unknown]
  - Asthma [Unknown]
  - Hypertension [Unknown]
  - Weight increased [Unknown]

NARRATIVE: CASE EVENT DATE: 2009
